FAERS Safety Report 16478517 (Version 3)
Quarter: 2019Q4

REPORT INFORMATION
  Report Type: Spontaneous
  Country: US (occurrence: US)
  Receive Date: 20190626
  Receipt Date: 20191112
  Transmission Date: 20200122
  Serious: No
  Sender: FDA-Public Use
  Company Number: US-PFIZER INC-2019258076

PATIENT
  Age: 78 Year
  Sex: Female
  Weight: 76 kg

DRUGS (3)
  1. LETROZOLE. [Concomitant]
     Active Substance: LETROZOLE
     Dosage: 25 MG, DAILY
     Dates: start: 20190611
  2. TAMOXIFEN [Concomitant]
     Active Substance: TAMOXIFEN
     Indication: NEOPLASM MALIGNANT
     Dosage: UNK
  3. IBRANCE [Suspect]
     Active Substance: PALBOCICLIB
     Indication: BONE CANCER
     Dosage: 125 MG, CYCLIC (125MG ONCE PER DAY FOR 21 DAYS AND 7 DAYS OFF)
     Route: 048
     Dates: start: 20190611

REACTIONS (6)
  - Blood test abnormal [Recovered/Resolved]
  - Hypoacusis [Unknown]
  - Drug effective for unapproved indication [Unknown]
  - Mental disorder [Unknown]
  - Off label use [Unknown]
  - Aphonia [Unknown]
